FAERS Safety Report 24205456 (Version 2)
Quarter: 2024Q3

REPORT INFORMATION
  Report Type: Spontaneous
  Country: CA (occurrence: CA)
  Receive Date: 20240813
  Receipt Date: 20240822
  Transmission Date: 20241016
  Serious: Yes (Death, Life-Threatening, Hospitalization)
  Sender: BAUSCH AND LOMB
  Company Number: CA-BAUSCH-BL-2024-012241

PATIENT
  Age: 6 Decade
  Sex: Male

DRUGS (17)
  1. DEXAMETHASONE [Suspect]
     Active Substance: DEXAMETHASONE
     Indication: COVID-19
     Dosage: REMDESIVIR, DEXAMETHASONE AND BAMLANIVIMAB
     Route: 065
     Dates: start: 202107
  2. DEXAMETHASONE [Suspect]
     Active Substance: DEXAMETHASONE
     Dosage: REMDESIVIR, DEXAMETHASONE AND BAMLANIVIMAB
     Route: 065
     Dates: start: 202201
  3. REMDESIVIR [Suspect]
     Active Substance: REMDESIVIR
     Indication: COVID-19
     Dosage: REMDESIVIR, DEXAMETHASONE AND BAMLANIVIMAB
     Route: 065
     Dates: start: 202107
  4. REMDESIVIR [Suspect]
     Active Substance: REMDESIVIR
     Dosage: SOTROVIMAB, REMDESIVIR, DEXAMETHASONE
     Route: 065
     Dates: start: 202201
  5. BAMLANIVIMAB [Suspect]
     Active Substance: BAMLANIVIMAB
     Indication: COVID-19
     Route: 065
     Dates: start: 202103
  6. BAMLANIVIMAB [Suspect]
     Active Substance: BAMLANIVIMAB
     Dosage: REMDESIVIR, DEXAMETHASONE AND BAMLANIVIMAB
     Route: 065
     Dates: start: 202107
  7. PREDNISONE [Suspect]
     Active Substance: PREDNISONE
     Indication: Graft versus host disease in skin
     Dosage: MULTIPLE DOSES
     Route: 065
     Dates: start: 202102
  8. PREDNISONE [Suspect]
     Active Substance: PREDNISONE
     Indication: Graft versus host disease in lung
  9. RITUXIMAB [Suspect]
     Active Substance: RITUXIMAB
     Indication: Post transplant lymphoproliferative disorder
     Route: 065
     Dates: start: 202104
  10. RITUXIMAB [Suspect]
     Active Substance: RITUXIMAB
     Indication: Epstein-Barr virus infection reactivation
  11. SOTROVIMAB [Suspect]
     Active Substance: SOTROVIMAB
     Indication: COVID-19
     Dosage: SOTROVIMAB, REMDESIVIR, DEXAMETHASONE
     Route: 065
     Dates: start: 202201
  12. CISPLATIN [Suspect]
     Active Substance: CISPLATIN
     Indication: Hodgkin^s disease
     Dosage: GDP (GEMCITABINE, DEXAMETHASONE, AND CISPLATIN) CHEMOTHERAPY
     Route: 065
     Dates: start: 2019
  13. DEXAMETHASONE [Suspect]
     Active Substance: DEXAMETHASONE
     Indication: Epstein-Barr virus infection reactivation
  14. BLEOMYCIN\DACARBAZINE\DOXORUBICIN\VINBLASTINE [Suspect]
     Active Substance: BLEOMYCIN\DACARBAZINE\DOXORUBICIN\VINBLASTINE
     Indication: Hodgkin^s disease
     Dosage: ABVD (DOXORUBICIN, BLEOMYCIN, VINBLASTINE, AND DACARBAZINE) CHEMOTHERAPY
     Route: 065
     Dates: start: 2019
  15. BRENTUXIMAB VEDOTIN [Suspect]
     Active Substance: BRENTUXIMAB VEDOTIN
     Indication: Graft versus host disease in skin
     Dosage: CD30 ANTIBODY-DRUG CONJUGATE BRENTUXIMAB
     Route: 065
  16. BRENTUXIMAB VEDOTIN [Suspect]
     Active Substance: BRENTUXIMAB VEDOTIN
     Indication: Graft versus host disease in lung
  17. GEMCITABINE [Suspect]
     Active Substance: GEMCITABINE

REACTIONS (3)
  - Respiratory failure [Fatal]
  - COVID-19 [Not Recovered/Not Resolved]
  - Renal impairment [Not Recovered/Not Resolved]

NARRATIVE: CASE EVENT DATE: 20210101
